FAERS Safety Report 8610713-3 (Version None)
Quarter: 2012Q3

REPORT INFORMATION
  Report Type: 
  Country: None (occurrence: None)
  Receive Date: 20120808
  Receipt Date: 20120724
  Transmission Date: 20120928
  Serious: Yes (Other)
  Sender: FDA-Public Use
  Company Number: FK201202170

PATIENT
  Age: 62 Year
  Sex: Female

DRUGS (3)
  1. PACLITAXEL [Suspect]
     Indication: TRANSITIONAL CELL CARCINOMA
     Dosage: 200 MG/M2
  2. SORAFENIB (SORAFENIB) [Concomitant]
  3. CISPLATIN [Concomitant]

REACTIONS (5)
  - METASTASES TO CENTRAL NERVOUS SYSTEM [None]
  - METASTASES TO SKIN [None]
  - METASTASES TO LYMPH NODES [None]
  - METASTASES TO LUNG [None]
  - CYSTOID MACULAR OEDEMA [None]
